FAERS Safety Report 12202150 (Version 7)
Quarter: 2016Q3

REPORT INFORMATION
  Report Type: Report from Study
  Country: CA (occurrence: CA)
  Receive Date: 20160323
  Receipt Date: 20160909
  Transmission Date: 20161109
  Serious: Yes (Other)
  Sender: FDA-Public Use
  Company Number: CA-ROCHE-1728407

PATIENT
  Age: 30 Year
  Sex: Female

DRUGS (5)
  1. XOLAIR [Suspect]
     Active Substance: OMALIZUMAB
     Dosage: UNK
     Route: 058
     Dates: start: 20160825
  2. XOLAIR [Suspect]
     Active Substance: OMALIZUMAB
     Indication: CHRONIC SPONTANEOUS URTICARIA
     Route: 058
     Dates: start: 20160311
  3. XOLAIR [Suspect]
     Active Substance: OMALIZUMAB
     Dosage: UNK
     Route: 058
     Dates: start: 20160729
  4. REACTINE (CANADA) [Concomitant]
     Active Substance: CETIRIZINE HYDROCHLORIDE
     Indication: PRODUCT USED FOR UNKNOWN INDICATION
     Route: 065
  5. XOLAIR [Suspect]
     Active Substance: OMALIZUMAB
     Dosage: UNK
     Route: 058
     Dates: start: 20160630

REACTIONS (14)
  - Anaphylactic reaction [Recovered/Resolved]
  - Herpes zoster [Unknown]
  - Oropharyngeal pain [Not Recovered/Not Resolved]
  - Drug ineffective [Unknown]
  - Malaise [Unknown]
  - Pruritus [Unknown]
  - Urticaria [Not Recovered/Not Resolved]
  - Lower respiratory tract congestion [Unknown]
  - Lower respiratory tract infection [Recovered/Resolved]
  - Nasopharyngitis [Unknown]
  - Pneumonia [Unknown]
  - Pyrexia [Unknown]
  - Productive cough [Unknown]
  - Sinusitis [Unknown]

NARRATIVE: CASE EVENT DATE: 20160311
